FAERS Safety Report 10263052 (Version 2)
Quarter: 2014Q2

REPORT INFORMATION
  Report Type: Report from Study
  Country: US (occurrence: US)
  Receive Date: 20140626
  Receipt Date: 20140626
  Transmission Date: 20141212
  Serious: Yes (Death)
  Sender: FDA-Public Use
  Company Number: US-MYLANLABS-2013S1028607

PATIENT
  Sex: Male

DRUGS (9)
  1. BENADRYL [Concomitant]
  2. ALPRAZOLAM [Concomitant]
  3. CYMBALTA [Concomitant]
  4. METOPROLOL TARTRATE [Concomitant]
  5. OMEPRAZOLE [Concomitant]
  6. LAMOTRIGINE [Concomitant]
  7. CLOZAPINE TABLETS [Suspect]
     Route: 048
     Dates: start: 20111220, end: 2013
  8. HALDOL [Concomitant]
  9. MORPHINE [Concomitant]

REACTIONS (1)
  - Death [Fatal]
